FAERS Safety Report 5565355-3 (Version None)
Quarter: 2007Q4

REPORT INFORMATION
  Report Type: 
  Country: None (occurrence: None)
  Receive Date: 20071218
  Receipt Date: 20071207
  Transmission Date: 20080405
  Serious: Yes (Other)
  Sender: FDA-Public Use
  Company Number: US-PFIZER INC-2007103571

PATIENT
  Sex: Female

DRUGS (2)
  1. LIPITOR [Suspect]
  2. BISOPROLOL [Suspect]

REACTIONS (7)
  - DYSPNOEA [None]
  - GLAUCOMA [None]
  - JOINT ARTHROPLASTY [None]
  - NEOPLASM MALIGNANT [None]
  - SPINAL FRACTURE [None]
  - SPINAL FUSION SURGERY [None]
  - UNEVALUABLE EVENT [None]
